FAERS Safety Report 6136457-8 (Version None)
Quarter: 2009Q1

REPORT INFORMATION
  Report Type: 
  Country: None (occurrence: None)
  Receive Date: 20090330
  Receipt Date: 20090325
  Transmission Date: 20090719
  Serious: Yes (Other)
  Sender: FDA-Public Use
  Company Number: US-KINGPHARMUSA00001-K200900352

PATIENT

DRUGS (2)
  1. FLECTOR [Suspect]
     Dosage: UNK PATCH, UNK
     Route: 061
  2. ACE INHIBITOR NOS [Concomitant]

REACTIONS (1)
  - RENAL FAILURE [None]
